FAERS Safety Report 6762665-9 (Version None)
Quarter: 2010Q2

REPORT INFORMATION
  Report Type: 
  Country: None (occurrence: None)
  Receive Date: 20100609
  Receipt Date: 20100528
  Transmission Date: 20101027
  Serious: Yes (Other)
  Sender: FDA-Public Use
  Company Number: A0863576A

PATIENT

DRUGS (1)
  1. DERMOVATE [Suspect]
     Indication: PSORIASIS
     Route: 061

REACTIONS (2)
  - DRUG INEFFECTIVE [None]
  - PSORIASIS [None]
